FAERS Safety Report 20005412 (Version 1)
Quarter: 2021Q4

REPORT INFORMATION
  Report Type: Spontaneous
  Country: CZ (occurrence: CZ)
  Receive Date: 20211028
  Receipt Date: 20211028
  Transmission Date: 20220303
  Serious: Yes (Other)
  Sender: FDA-Public Use
  Company Number: CZ-002147023-NVSC2021CZ238333

PATIENT
  Age: 72 Year
  Sex: Female

DRUGS (2)
  1. RANIBIZUMAB [Suspect]
     Active Substance: RANIBIZUMAB
     Indication: Neovascular age-related macular degeneration
     Dosage: UNK
     Route: 065
  2. RANIBIZUMAB [Suspect]
     Active Substance: RANIBIZUMAB
     Indication: Choroidal neovascularisation

REACTIONS (4)
  - Retinal thickening [Unknown]
  - Retinal oedema [Unknown]
  - Visual acuity reduced [Unknown]
  - Drug ineffective [Unknown]
